FAERS Safety Report 8432161-1 (Version None)
Quarter: 2012Q2

REPORT INFORMATION
  Report Type: 
  Country: None (occurrence: None)
  Receive Date: 20120613
  Receipt Date: 20120530
  Transmission Date: 20120825
  Serious: Yes (Other)
  Sender: FDA-Public Use
  Company Number: PHBS1998AU26821

PATIENT
  Sex: Female
  Weight: 83 kg

DRUGS (5)
  1. TEMAZEPAM [Concomitant]
  2. COGENTIN [Concomitant]
  3. VALPROATE SODIUM [Concomitant]
  4. CLOZARIL [Suspect]
     Indication: SCHIZOPHRENIA
     Route: 048
     Dates: start: 19940629, end: 19960531
  5. CEFOXITIN [Concomitant]
     Route: 042

REACTIONS (4)
  - PYELONEPHRITIS [None]
  - NEUTROPHILIA [None]
  - RENAL ABSCESS [None]
  - SEPSIS [None]
